FAERS Safety Report 14206815 (Version 1)
Quarter: 2017Q4

REPORT INFORMATION
  Report Type: Spontaneous
  Country: US (occurrence: US)
  Receive Date: 20171121
  Receipt Date: 20171121
  Transmission Date: 20180321
  Serious: No
  Sender: FDA-Public Use
  Company Number: US-BRISTOL-MYERS SQUIBB COMPANY-BMS-2017-104524

PATIENT
  Sex: Female

DRUGS (1)
  1. ELIQUIS [Suspect]
     Active Substance: APIXABAN
     Indication: CARDIAC OPERATION
     Dosage: 2.5 MG, BID
     Route: 048

REACTIONS (3)
  - Product use in unapproved indication [Unknown]
  - Feeling abnormal [Unknown]
  - Infection parasitic [Unknown]
